FAERS Safety Report 5353055-4 (Version None)
Quarter: 2007Q2

REPORT INFORMATION
  Report Type: 
  Country: None (occurrence: None)
  Receive Date: 20070606
  Receipt Date: 20070523
  Transmission Date: 20071010
  Serious: Yes (Other)
  Sender: FDA-Public Use
  Company Number: CH-GDP-0714956

PATIENT
  Age: 44 Year
  Sex: Female

DRUGS (1)
  1. METVIXIA [Suspect]
     Indication: ACTINIC KERATOSIS
     Dosage: 1 APP ONCE TP
     Route: 061
     Dates: start: 20070328, end: 20070328

REACTIONS (5)
  - APPLICATION SITE PUSTULES [None]
  - ERYTHEMA [None]
  - LOSS OF EMPLOYMENT [None]
  - PAIN OF SKIN [None]
  - SKIN OEDEMA [None]
